FAERS Safety Report 16376928 (Version 1)
Quarter: 2019Q3

REPORT INFORMATION
  Report Type: Spontaneous
  Country: US (occurrence: US)
  Receive Date: 20190524
  Receipt Date: 20190524
  Transmission Date: 20191004
  Serious: Yes (Life-Threatening, Disabling)
  Sender: FDA-Public Use
  Company Number: None

PATIENT
  Age: 36 Year
  Sex: Male
  Weight: 130.5 kg

DRUGS (3)
  1. AZITHROMYCIN ANHYDROUS. [Suspect]
     Active Substance: AZITHROMYCIN ANHYDROUS
     Indication: BRONCHITIS
     Dosage: ?          QUANTITY:1 TABLET(S);?
     Route: 048
     Dates: start: 20190523
  2. CBD OIL [Suspect]
     Active Substance: CANNABIDIOL\HERBALS
     Indication: ANXIETY
     Dosage: ?          QUANTITY:1 DROP(S);?
     Route: 060
     Dates: start: 20170815
  3. CBD OIL [Suspect]
     Active Substance: CANNABIDIOL\HERBALS
     Indication: SLEEP DISORDER
     Dosage: ?          QUANTITY:1 DROP(S);?
     Route: 060
     Dates: start: 20170815

REACTIONS (5)
  - Anger [None]
  - Feeling abnormal [None]
  - Product formulation issue [None]
  - Homicidal ideation [None]
  - Irritability [None]

NARRATIVE: CASE EVENT DATE: 20190523
